FAERS Safety Report 6822094-6 (Version None)
Quarter: 2010Q3

REPORT INFORMATION
  Report Type: 
  Country: None (occurrence: None)
  Receive Date: 20100708
  Receipt Date: 20100628
  Transmission Date: 20110219
  Serious: No
  Sender: FDA-Public Use
  Company Number: US-JNJFOC-20100700120

PATIENT
  Sex: Female
  Weight: 68.49 kg

DRUGS (2)
  1. DURAGESIC-100 [Suspect]
     Indication: PAIN
     Dosage: TWO 100UG/HR PATCHES IN 72 HOURS.
     Route: 062
  2. DURAGESIC-100 [Suspect]
     Dosage: TWO 100UG/HR PATCHES IN 72 HOURS.
     Route: 062

REACTIONS (2)
  - PRODUCT ADHESION ISSUE [None]
  - WRONG TECHNIQUE IN DRUG USAGE PROCESS [None]
